FAERS Safety Report 21997486 (Version 2)
Quarter: 2023Q1

REPORT INFORMATION
  Report Type: Spontaneous
  Country: DE (occurrence: DE)
  Receive Date: 20230216
  Receipt Date: 20230303
  Transmission Date: 20230418
  Serious: Yes (Hospitalization)
  Sender: FDA-Public Use
  Company Number: DE-TEVA-2023-DE-2855863

PATIENT
  Age: 85 Year
  Sex: Female

DRUGS (8)
  1. OFLOXACIN [Suspect]
     Active Substance: OFLOXACIN
     Indication: Infectious crystalline keratopathy
     Dosage: FOR THE NIGHT.
     Route: 061
  2. CEFTRIAXONE [Suspect]
     Active Substance: CEFTRIAXONE
     Indication: Infectious crystalline keratopathy
     Dosage: 2 GRAM DAILY; FOR THE FIRST 3 DAYS AFTER INITIAL DIAGNOSIS.
     Route: 042
  3. PREDNISOLONE ACETATE [Suspect]
     Active Substance: PREDNISOLONE ACETATE
     Indication: Immunosuppressant drug therapy
     Dosage: INITIALLY FIVE TIMES/DAY.
     Route: 061
  4. PREDNISOLONE ACETATE [Suspect]
     Active Substance: PREDNISOLONE ACETATE
     Dosage: REDUCED BY ONE DROP EVERY 8 WEEKS
     Route: 061
  5. PREDNISOLONE ACETATE [Suspect]
     Active Substance: PREDNISOLONE ACETATE
     Dosage: AND THEN LEFT PERMANENTLY AT ONE TIME/DAY
     Route: 061
  6. VANCOMYCIN [Suspect]
     Active Substance: VANCOMYCIN
     Indication: Infectious crystalline keratopathy
     Dosage: EIGHT TIMES/DAY. FORMULATION: EYE DROP
     Route: 061
  7. PREDNISOLONE [Suspect]
     Active Substance: PREDNISOLONE
     Indication: Infectious crystalline keratopathy
     Dosage: THREE TIMES/DAY. FORMULATION: EYE DROP
     Route: 061
  8. MOXIFLOXACIN [Suspect]
     Active Substance: MOXIFLOXACIN
     Indication: Infectious crystalline keratopathy
     Dosage: EIGHT TIMES EVERY DAY
     Route: 061

REACTIONS (2)
  - Infectious crystalline keratopathy [Recovered/Resolved]
  - Drug ineffective [Unknown]
